FAERS Safety Report 8344525 (Version 2)
Quarter: 2014Q1

REPORT INFORMATION
  Report Type: Spontaneous
  Country: CA (occurrence: CA)
  Receive Date: 20120119
  Receipt Date: 20140318
  Transmission Date: 20141002
  Serious: Yes (Hospitalization, Other)
  Sender: FDA-Public Use
  Company Number: CA-ROCHE-1031620

PATIENT
  Age: 68 Year
  Sex: Male

DRUGS (2)
  1. XOLAIR [Suspect]
     Indication: ASTHMA
     Route: 058
     Dates: start: 20060527
  2. XOLAIR [Suspect]
     Route: 058
     Dates: start: 20060922

REACTIONS (3)
  - Shock [Unknown]
  - Syncope [Unknown]
  - Loss of consciousness [Unknown]
